FAERS Safety Report 4976823-7 (Version None)
Quarter: 2006Q2

REPORT INFORMATION
  Report Type: 
  Country: None (occurrence: None)
  Receive Date: 20060413
  Receipt Date: 20060401
  Transmission Date: 20061013
  Serious: Yes (Other)
  Sender: FDA-Public Use
  Company Number: 2006045120

PATIENT
  Sex: Male

DRUGS (1)
  1. LISTERINE ANTISEPTIC MOUTHWASH (MENTHOL, MEHTYL SALICYLATE, EUCALYPTOL [Suspect]
     Indication: FEELING DRUNK
     Dosage: 1/2 A BOTTLE, ORAL
     Route: 048
     Dates: start: 20060401

REACTIONS (3)
  - ALCOHOL POISONING [None]
  - INCORRECT DOSE ADMINISTERED [None]
  - INTENTIONAL DRUG MISUSE [None]
